FAERS Safety Report 21596468 (Version 1)
Quarter: 2022Q4

REPORT INFORMATION
  Report Type: Spontaneous
  Country: US (occurrence: US)
  Receive Date: 20221115
  Receipt Date: 20221115
  Transmission Date: 20230113
  Serious: No
  Sender: FDA-Public Use
  Company Number: US-JNJFOC-20221111302

PATIENT
  Sex: Female

DRUGS (1)
  1. SPRAVATO [Suspect]
     Active Substance: ESKETAMINE
     Indication: Product used for unknown indication
     Route: 045

REACTIONS (7)
  - Paraesthesia [Unknown]
  - Feeling abnormal [Unknown]
  - Gait disturbance [Unknown]
  - Dissociation [Unknown]
  - Upper-airway cough syndrome [Unknown]
  - Mental status changes [Unknown]
  - Fatigue [Unknown]
